FAERS Safety Report 9675099 (Version 1)
Quarter: 2013Q4

REPORT INFORMATION
  Report Type: Spontaneous
  Country: US (occurrence: None)
  Receive Date: 20131105
  Receipt Date: 20131105
  Transmission Date: 20140711
  Serious: Yes (Death)
  Sender: FDA-Public Use
  Company Number: 2013P1020492

PATIENT
  Age: 7 Year
  Sex: Male

DRUGS (1)
  1. EPINEPHRINE [Suspect]
     Indication: THERAPEUTIC PROCEDURE
     Dates: start: 1996, end: 1996

REACTIONS (2)
  - Cardiac arrest [None]
  - Incorrect dose administered [None]
